FAERS Safety Report 7183945-1 (Version None)
Quarter: 2010Q4

REPORT INFORMATION
  Report Type: 
  Country: None (occurrence: None)
  Receive Date: 20101222
  Receipt Date: 20101213
  Transmission Date: 20110411
  Serious: Yes (Other)
  Sender: FDA-Public Use
  Company Number: TW-ROCHE-748507

PATIENT

DRUGS (2)
  1. PEGINTERFERON ALFA-2A [Suspect]
     Indication: CHRONIC HEPATITIS
     Route: 065
  2. RIBAVIRIN [Suspect]
     Indication: CHRONIC HEPATITIS
     Route: 048

REACTIONS (11)
  - CELLULITIS [None]
  - CHOLECYSTITIS [None]
  - DYSPNOEA [None]
  - GASTROINTESTINAL HAEMORRHAGE [None]
  - ILEUS [None]
  - LEUKOPENIA [None]
  - NEUTROPENIA [None]
  - ROAD TRAFFIC ACCIDENT [None]
  - SYNCOPE [None]
  - THROMBOCYTOPENIA [None]
  - THYROID DISORDER [None]
